FAERS Safety Report 7741950-8 (Version None)
Quarter: 2011Q3

REPORT INFORMATION
  Report Type: 
  Country: None (occurrence: None)
  Receive Date: 20110907
  Receipt Date: 20110907
  Transmission Date: 20111222
  Serious: Yes (Hospitalization)
  Sender: FDA-Public Use
  Company Number: None

PATIENT
  Sex: Female
  Weight: 93.4 kg

DRUGS (2)
  1. TAXOL [Suspect]
     Dosage: 350 MG
  2. CARBOPLATIN [Suspect]
     Dosage: 375 MG

REACTIONS (12)
  - FACE INJURY [None]
  - ULTRASOUND KIDNEY ABNORMAL [None]
  - DIARRHOEA [None]
  - DIZZINESS [None]
  - SYNCOPE [None]
  - BLOOD CREATININE INCREASED [None]
  - FALL [None]
  - ASTHENIA [None]
  - FATIGUE [None]
  - EXCORIATION [None]
  - HYPOTENSION [None]
  - HYPOPHAGIA [None]
